FAERS Safety Report 9578596 (Version 1)
Quarter: 2013Q4

REPORT INFORMATION
  Report Type: Spontaneous
  Country: US (occurrence: US)
  Receive Date: 20131001
  Receipt Date: 20131001
  Transmission Date: 20140711
  Serious: No
  Sender: FDA-Public Use
  Company Number: US-AMGEN-USASP2013014108

PATIENT
  Age: 67 Year
  Sex: Male
  Weight: 86.16 kg

DRUGS (12)
  1. ENBREL [Suspect]
     Indication: PRODUCT USED FOR UNKNOWN INDICATION
     Dosage: 50 MG, QWK
     Route: 058
  2. PREDNISONE [Concomitant]
     Dosage: 2.5 MG, UNK
  3. LEFLUNOMIDE [Concomitant]
     Dosage: 10 MG, UNK
  4. ULTRAM ER [Concomitant]
     Dosage: 100 MG, UNK
  5. COQ10                              /00517201/ [Concomitant]
     Dosage: 10 MG, UNK
  6. CRESTOR [Concomitant]
     Dosage: 10 MG, UNK
  7. LEXAPRO [Concomitant]
     Dosage: 5 MG, UNK
  8. LOTREL [Concomitant]
     Dosage: 10-20 MG
  9. ECHINACEA PURPUREA [Concomitant]
     Dosage: 80 MG, UNK
  10. FISH OIL [Concomitant]
     Dosage: UNK
  11. ASPIRIN [Concomitant]
     Dosage: 325 MG, UNK
  12. OSTEO BI-FLEX [Concomitant]
     Dosage: UNK,250-200

REACTIONS (1)
  - Injection site pruritus [Unknown]
